FAERS Safety Report 11806544 (Version 7)
Quarter: 2016Q1

REPORT INFORMATION
  Report Type: Report from Study
  Country: CA (occurrence: CA)
  Receive Date: 20151207
  Receipt Date: 20160302
  Transmission Date: 20160525
  Serious: Yes (Other)
  Sender: FDA-Public Use
  Company Number: CA-JNJFOC-20151203867

PATIENT
  Age: 48 Year
  Sex: Male
  Weight: 78.02 kg

DRUGS (2)
  1. SIMPONI [Suspect]
     Active Substance: GOLIMUMAB
     Indication: ANKYLOSING SPONDYLITIS
     Route: 058
     Dates: start: 20150415
  2. SIMPONI [Suspect]
     Active Substance: GOLIMUMAB
     Indication: ANKYLOSING SPONDYLITIS
     Route: 058
     Dates: start: 20150415

REACTIONS (4)
  - Herpes zoster [Recovered/Resolved]
  - Lower respiratory tract infection [Unknown]
  - Asthma [Unknown]
  - Inflammation [Unknown]

NARRATIVE: CASE EVENT DATE: 20151201
